FAERS Safety Report 5474071-8 (Version None)
Quarter: 2007Q4

REPORT INFORMATION
  Report Type: 
  Country: None (occurrence: None)
  Receive Date: 20071002
  Receipt Date: 20070921
  Transmission Date: 20080405
  Serious: Yes (Other)
  Sender: FDA-Public Use
  Company Number: PHBS2007JP15757

PATIENT

DRUGS (3)
  1. STARSIS [Suspect]
     Indication: DIABETES MELLITUS
     Route: 048
  2. BASEN [Concomitant]
  3. STEROIDS NOS [Concomitant]

REACTIONS (2)
  - ASCITES [None]
  - RENAL IMPAIRMENT [None]
